FAERS Safety Report 4374641-4 (Version None)
Quarter: 2004Q2

REPORT INFORMATION
  Report Type: 
  Country: None (occurrence: None)
  Receive Date: 20040609
  Receipt Date: 20040517
  Transmission Date: 20050107
  Serious: Yes (Hospitalization)
  Sender: FDA-Public Use
  Company Number: JP-GLAXOSMITHKLINE-B0333037A

PATIENT
  Age: 79 Year
  Sex: Female

DRUGS (10)
  1. VALTREX [Suspect]
     Indication: HERPES ZOSTER
     Dosage: 1000MG THREE TIMES PER DAY
     Route: 048
     Dates: start: 20040506, end: 20040509
  2. PREDONINE [Concomitant]
     Indication: MULTIPLE MYELOMA
     Route: 048
     Dates: start: 20040514
  3. ZOVIRAX [Concomitant]
     Route: 042
     Dates: start: 20040509, end: 20040514
  4. ALDACTONE A [Concomitant]
     Indication: POLYURIA
     Dosage: 50MG PER DAY
     Route: 048
  5. BISOLVON [Concomitant]
     Indication: PRODUCTIVE COUGH
     Dosage: 12MG PER DAY
     Route: 048
  6. ASPARA-CA [Concomitant]
     Dosage: 1.2G PER DAY
     Route: 048
  7. ERYTHROCIN [Concomitant]
     Indication: INFECTION PROPHYLAXIS
     Dosage: 400MG PER DAY
     Route: 048
  8. OMEPRAZOLE [Concomitant]
     Indication: GASTRIC ULCER
     Dosage: 20MG PER DAY
     Route: 048
  9. DIFLUCAN [Concomitant]
     Indication: INFECTION PROPHYLAXIS
     Dosage: 100MG PER DAY
     Route: 048
  10. OXYCONTIN [Concomitant]
     Indication: PAIN
     Dosage: 10MG PER DAY
     Route: 048

REACTIONS (3)
  - ERYTHEMA [None]
  - PAIN [None]
  - TOXIC SKIN ERUPTION [None]
